FAERS Safety Report 5187812-4 (Version None)
Quarter: 2006Q4

REPORT INFORMATION
  Report Type: 
  Country: None (occurrence: None)
  Receive Date: 20061221
  Receipt Date: 20061213
  Transmission Date: 20070319
  Serious: Yes (Other)
  Sender: FDA-Public Use
  Company Number: ES-JNJFOC-20061201233

PATIENT
  Age: 38 Year
  Sex: Female

DRUGS (1)
  1. REMICADE [Suspect]
     Indication: PSORIASIS
     Dosage: FIVE INFUSIONS
     Route: 042

REACTIONS (5)
  - DEMYELINATION [None]
  - HEADACHE [None]
  - MULTIPLE SCLEROSIS [None]
  - PHOTOPSIA [None]
  - VISUAL DISTURBANCE [None]
